FAERS Safety Report 5650688-2 (Version None)
Quarter: 2008Q1

REPORT INFORMATION
  Report Type: 
  Country: None (occurrence: None)
  Receive Date: 20080305
  Receipt Date: 20080222
  Transmission Date: 20080703
  Serious: Yes (Other)
  Sender: FDA-Public Use
  Company Number: NL-AMGEN-US267235

PATIENT
  Sex: Female
  Weight: 70 kg

DRUGS (4)
  1. ENBREL [Suspect]
     Indication: ANKYLOSING SPONDYLITIS
     Route: 058
     Dates: start: 20070321, end: 20080221
  2. NEXIUM [Concomitant]
     Indication: PROPHYLAXIS
     Route: 065
  3. VALACYCLOVIR [Concomitant]
     Route: 065
     Dates: start: 20070424
  4. DICLOFENAC SODIUM [Concomitant]
     Indication: ANKYLOSING SPONDYLITIS
     Route: 065
     Dates: start: 20070831

REACTIONS (1)
  - SMEAR CERVIX ABNORMAL [None]
